FAERS Safety Report 20582216 (Version 2)
Quarter: 2022Q2

REPORT INFORMATION
  Report Type: Spontaneous
  Country: DE (occurrence: DE)
  Receive Date: 20220311
  Receipt Date: 20220408
  Transmission Date: 20220720
  Serious: Yes (Other)
  Sender: FDA-Public Use
  Company Number: DE-009507513-2203DEU003111

PATIENT
  Age: 65 Year
  Sex: Female

DRUGS (5)
  1. PEMBROLIZUMAB [Suspect]
     Active Substance: PEMBROLIZUMAB
     Indication: Triple negative breast cancer
     Dosage: 2 TIMES 3 WEEKLY UNTIL THE END OF OCTOBER 2021
     Dates: start: 2021, end: 202110
  2. PACLITAXEL [Suspect]
     Active Substance: PACLITAXEL
     Indication: Triple negative breast cancer
     Dosage: 6 TIMES WEEKLY
     Dates: start: 2021, end: 202110
  3. CARBOPLATIN [Suspect]
     Active Substance: CARBOPLATIN
     Indication: Triple negative breast cancer
     Dosage: 6 TIMES WEEKLY
     Dates: start: 2021, end: 202110
  4. HUMAN IMMUNOGLOBULIN G [Suspect]
     Active Substance: HUMAN IMMUNOGLOBULIN G
     Dosage: UNK
  5. CORTISONE [Suspect]
     Active Substance: CORTISONE
     Dosage: UNK

REACTIONS (14)
  - Agranulocytosis [Unknown]
  - Lupus-like syndrome [Unknown]
  - Sepsis [Unknown]
  - Diabetes mellitus [Unknown]
  - Systemic lupus erythematosus [Unknown]
  - Dermatitis bullous [Unknown]
  - Epilepsy [Unknown]
  - Autoimmune disorder [Unknown]
  - Erythema multiforme [Unknown]
  - Toxic epidermal necrolysis [Unknown]
  - Nervous system disorder [Unknown]
  - Skin reaction [Unknown]
  - Surgery [Unknown]
  - Off label use [Unknown]
